FAERS Safety Report 10284565 (Version 1)
Quarter: 2014Q3

REPORT INFORMATION
  Report Type: Spontaneous
  Country: US (occurrence: None)
  Receive Date: 20140703
  Receipt Date: 20140703
  Transmission Date: 20150326
  Serious: Yes (Other)
  Sender: FDA-Public Use
  Company Number: 2014IHE00068

PATIENT
  Age: 79 Year
  Sex: Female
  Weight: 57.1 kg

DRUGS (3)
  1. AZO [Suspect]
     Active Substance: PHENAZOPYRIDINE HYDROCHLORIDE
     Indication: URINARY TRACT INFECTION
     Dosage: 1 TABLET
     Route: 048
     Dates: start: 20140617, end: 20140619
  2. AMOXICILLIN. [Concomitant]
     Active Substance: AMOXICILLIN
  3. LISINOPRIL. [Concomitant]
     Active Substance: LISINOPRIL

REACTIONS (6)
  - Syncope [None]
  - Vomiting [None]
  - Laceration [None]
  - Haemorrhage [None]
  - Head injury [None]
  - Headache [None]

NARRATIVE: CASE EVENT DATE: 20140619
